FAERS Safety Report 10731886 (Version 1)
Quarter: 2015Q1

REPORT INFORMATION
  Report Type: Spontaneous
  Country: US (occurrence: US)
  Receive Date: 20150123
  Receipt Date: 20150123
  Transmission Date: 20150721
  Serious: No
  Sender: FDA-Public Use
  Company Number: US-BIOGENIDEC-2015BI007448

PATIENT
  Age: 24 Year
  Sex: Male

DRUGS (1)
  1. AVONEX [Suspect]
     Active Substance: INTERFERON BETA-1A
     Indication: MULTIPLE SCLEROSIS
     Route: 030
     Dates: start: 20140206

REACTIONS (3)
  - Cold sweat [Recovered/Resolved with Sequelae]
  - Pain [Recovered/Resolved with Sequelae]
  - Feeling cold [Recovered/Resolved with Sequelae]

NARRATIVE: CASE EVENT DATE: 20150103
